FAERS Safety Report 5345358-4 (Version None)
Quarter: 2007Q2

REPORT INFORMATION
  Report Type: 
  Country: None (occurrence: None)
  Receive Date: 20070601
  Receipt Date: 20070517
  Transmission Date: 20071010
  Serious: Yes (Other)
  Sender: FDA-Public Use
  Company Number: 013768

PATIENT
  Age: 18 Year
  Sex: Female

DRUGS (2)
  1. CLARAVIS [Suspect]
     Indication: ACNE
     Dosage: 20 MG, BID, ORAL
     Route: 048
     Dates: start: 20070103, end: 20070517
  2. ORAL CONTRACEPTIVE( ORAL CONTRACEPTIVE NOS) [Suspect]

REACTIONS (1)
  - ERYTHEMA NODOSUM [None]
